FAERS Safety Report 10230037 (Version 1)
Quarter: 2014Q2

REPORT INFORMATION
  Report Type: Spontaneous
  Country: US (occurrence: US)
  Receive Date: 20140611
  Receipt Date: 20140611
  Transmission Date: 20141212
  Serious: No
  Sender: FDA-Public Use
  Company Number: US-ABBVIE-13P-163-1153398-00

PATIENT
  Age: 51 Year
  Sex: Female

DRUGS (2)
  1. POTASSIUM CHLORIDE EXTENDED-RELEASE [Suspect]
     Indication: BLOOD POTASSIUM DECREASED
     Dates: start: 2011
  2. LOSARTAN [Concomitant]
     Indication: HYPERTENSION

REACTIONS (1)
  - Medication residue present [Recovered/Resolved]
